FAERS Safety Report 7927100-3 (Version None)
Quarter: 2011Q4

REPORT INFORMATION
  Report Type: 
  Country: None (occurrence: None)
  Receive Date: 20111118
  Receipt Date: 20111109
  Transmission Date: 20120403
  Serious: Yes (Other)
  Sender: FDA-Public Use
  Company Number: CA-JNJFOC-20111010259

PATIENT
  Sex: Female
  Weight: 55.34 kg

DRUGS (1)
  1. REMICADE [Suspect]
     Indication: RHEUMATOID ARTHRITIS
     Route: 042
     Dates: start: 20100101

REACTIONS (5)
  - BODY TEMPERATURE INCREASED [None]
  - RASH [None]
  - DIZZINESS [None]
  - ABNORMAL BEHAVIOUR [None]
  - OSTEOARTHRITIS [None]
